FAERS Safety Report 8195811-3 (Version None)
Quarter: 2012Q1

REPORT INFORMATION
  Report Type: 
  Country: None (occurrence: None)
  Receive Date: 20120308
  Receipt Date: 20120302
  Transmission Date: 20120608
  Serious: Yes (Hospitalization)
  Sender: FDA-Public Use
  Company Number: BR-ABBOTT-12P-020-0910790-00

PATIENT
  Sex: Female
  Weight: 60 kg

DRUGS (10)
  1. HUMIRA [Suspect]
     Indication: RHEUMATOID ARTHRITIS
     Route: 058
     Dates: start: 20100101
  2. ARAVA [Concomitant]
     Indication: ANTIINFLAMMATORY THERAPY
     Route: 048
  3. DIMENHYDRINATE / PYRIDOXINE HYDROCHLORIDE (DRAMIM B6) [Concomitant]
     Route: 048
  4. DIMENHYDRINATE / PYRIDOXINE HYDROCHLORIDE (DRAMIM B6) [Concomitant]
     Indication: NAUSEA
     Dosage: TWO PER DAY
     Route: 048
  5. GINKGO BILOBA [Concomitant]
     Indication: CARDIOVASCULAR DISORDER
     Dosage: TWO TABLETS PER DAY
     Route: 048
  6. NAPROXEN [Concomitant]
     Indication: ANTIINFLAMMATORY THERAPY
     Dosage: TWO PER DAY
     Route: 048
  7. LOSARTAN POTASSIUM [Concomitant]
     Indication: HYPERTENSION
     Route: 048
  8. OMEPRAZOLE [Concomitant]
     Indication: PRODUCT USED FOR UNKNOWN INDICATION
     Dosage: TWO PER DAY
     Route: 048
  9. PREDNISONE [Concomitant]
     Indication: ANTIINFLAMMATORY THERAPY
     Dosage: TWO PER DAY
     Route: 048
  10. METHOTREXATE [Concomitant]
     Indication: ANTIINFLAMMATORY THERAPY
     Route: 058

REACTIONS (10)
  - BLOOD PRESSURE INCREASED [None]
  - HYPERSENSITIVITY [None]
  - ALOPECIA [None]
  - DIARRHOEA [None]
  - RASH VESICULAR [None]
  - GASTROINTESTINAL DISORDER [None]
  - PAIN [None]
  - PYREXIA [None]
  - HYPERTENSION [None]
  - VOMITING [None]
